FAERS Safety Report 8603542-8 (Version None)
Quarter: 2012Q3

REPORT INFORMATION
  Report Type: 
  Country: None (occurrence: None)
  Receive Date: 20120817
  Receipt Date: 20120813
  Transmission Date: 20120928
  Serious: Yes (Other)
  Sender: FDA-Public Use
  Company Number: US-ROCHE-1070777

PATIENT
  Sex: Male

DRUGS (4)
  1. INFLIXIMAB [Concomitant]
  2. AVASTIN [Suspect]
     Indication: DIABETIC RETINAL OEDEMA
     Dosage: RECEIVED IN RIGHT EYE
     Route: 050
     Dates: start: 20100101
  3. AVASTIN [Suspect]
     Indication: AGE-RELATED MACULAR DEGENERATION
     Dosage: RECEIVED IN RIGHT EYE
     Route: 050
  4. PREDNISONE TAB [Concomitant]

REACTIONS (12)
  - ENDOPHTHALMITIS [None]
  - EYELID OEDEMA [None]
  - EYE SWELLING [None]
  - TRANSMISSION OF AN INFECTIOUS AGENT VIA A MEDICINAL PRODUCT [None]
  - VITREOUS FLOATERS [None]
  - OPHTHALMOLOGICAL EXAMINATION ABNORMAL [None]
  - OCULAR HYPERAEMIA [None]
  - PRODUCT QUALITY ISSUE [None]
  - ERYTHEMA [None]
  - BLINDNESS UNILATERAL [None]
  - EYE INFECTION [None]
  - EYE PAIN [None]
